FAERS Safety Report 16278423 (Version 1)
Quarter: 2019Q2

REPORT INFORMATION
  Report Type: Spontaneous
  Country: GB (occurrence: GB)
  Receive Date: 20190506
  Receipt Date: 20190506
  Transmission Date: 20190711
  Serious: Yes (Other)
  Sender: FDA-Public Use
  Company Number: GB-TEVA-2019-GB-1045384

PATIENT
  Age: 62 Year
  Sex: Female
  Weight: 60 kg

DRUGS (1)
  1. NITROFURANTOIN. [Suspect]
     Active Substance: NITROFURANTOIN
     Indication: URINARY TRACT INFECTION
     Route: 048
     Dates: start: 20190312

REACTIONS (4)
  - Joint swelling [Unknown]
  - Rash [Unknown]
  - Erythema nodosum [Not Recovered/Not Resolved]
  - Oral pain [Unknown]

NARRATIVE: CASE EVENT DATE: 20190312
